FAERS Safety Report 14673683 (Version 3)
Quarter: 2018Q2

REPORT INFORMATION
  Report Type: Spontaneous
  Country: US (occurrence: US)
  Receive Date: 20180323
  Receipt Date: 20180517
  Transmission Date: 20180711
  Serious: No
  Sender: FDA-Public Use
  Company Number: US-VIIV HEALTHCARE LIMITED-US2018GSK044518

PATIENT
  Age: 32 Year
  Sex: Male

DRUGS (1)
  1. TRIUMEQ [Suspect]
     Active Substance: ABACAVIR SULFATE\DOLUTEGRAVIR SODIUM\LAMIVUDINE
     Indication: HIV INFECTION
     Dosage: UNK
     Dates: start: 201412

REACTIONS (8)
  - Influenza like illness [Unknown]
  - Adverse drug reaction [Unknown]
  - Skin exfoliation [Unknown]
  - Decreased appetite [Unknown]
  - Asthenia [Unknown]
  - Oropharyngeal pain [Unknown]
  - Fatigue [Unknown]
  - Dysphonia [Unknown]

NARRATIVE: CASE EVENT DATE: 201803
